FAERS Safety Report 15259648 (Version 1)
Quarter: 2018Q3

REPORT INFORMATION
  Report Type: Spontaneous
  Country: US (occurrence: US)
  Receive Date: 20180719
  Receipt Date: 20180719
  Transmission Date: 20181010
  Serious: No
  Sender: FDA-Public Use
  Company Number: None

PATIENT
  Sex: Female
  Weight: 64.86 kg

DRUGS (7)
  1. FORTEO [Suspect]
     Active Substance: TERIPARATIDE
     Indication: OSTEOPOROSIS
     Route: 058
     Dates: start: 201707
  2. FORTEO [Suspect]
     Active Substance: TERIPARATIDE
     Indication: MONOCLONAL GAMMOPATHY
     Route: 058
     Dates: start: 201707
  3. FORTEO [Suspect]
     Active Substance: TERIPARATIDE
     Indication: FELTY^S SYNDROME
     Route: 058
     Dates: start: 201707
  4. FORTEO [Suspect]
     Active Substance: TERIPARATIDE
     Indication: MALNUTRITION
     Route: 058
     Dates: start: 201707
  5. FORTEO [Suspect]
     Active Substance: TERIPARATIDE
     Indication: MYOSITIS OSSIFICANS
     Route: 058
     Dates: start: 201707
  6. FORTEO [Suspect]
     Active Substance: TERIPARATIDE
     Indication: PRODUCT USED FOR UNKNOWN INDICATION
     Route: 058
     Dates: start: 201707
  7. FORTEO [Suspect]
     Active Substance: TERIPARATIDE
     Indication: CROHN^S DISEASE
     Route: 058
     Dates: start: 201707

REACTIONS (2)
  - Dizziness [None]
  - White blood cell count decreased [None]
